FAERS Safety Report 13185522 (Version 1)
Quarter: 2017Q1

REPORT INFORMATION
  Report Type: Report from Study
  Country: US (occurrence: IE)
  Receive Date: 20170203
  Receipt Date: 20170203
  Transmission Date: 20170428
  Serious: Yes (Other)
  Sender: FDA-Public Use
  Company Number: US-SUNOVION-2017SUN000450

PATIENT

DRUGS (12)
  1. ESOMEPRAZOLE [Concomitant]
     Active Substance: ESOMEPRAZOLE
  2. ELTROXIN [Concomitant]
     Active Substance: LEVOTHYROXINE
  3. DIAMICRON [Concomitant]
     Active Substance: GLICLAZIDE
  4. INDACATEROL AND GLYCOPYRROLATE [Suspect]
     Active Substance: GLYCOPYRROLATE\INDACATEROL MALEATE
     Indication: CHRONIC OBSTRUCTIVE PULMONARY DISEASE
     Dosage: 1 DF (85 UG/ 43 UG), UNK
     Route: 055
     Dates: start: 20161024
  5. INSPRA [Concomitant]
     Active Substance: EPLERENONE
  6. BURINEX [Concomitant]
     Active Substance: BUMETANIDE
  7. METFORMIN [Concomitant]
     Active Substance: METFORMIN HYDROCHLORIDE
  8. ATROVENT [Concomitant]
     Active Substance: IPRATROPIUM BROMIDE
  9. LIPITOR [Concomitant]
     Active Substance: ATORVASTATIN CALCIUM
  10. XARELTO [Concomitant]
     Active Substance: RIVAROXABAN
  11. RAMIPRIL. [Concomitant]
     Active Substance: RAMIPRIL
  12. CARDICOR [Concomitant]
     Active Substance: BISOPROLOL

REACTIONS (5)
  - Gastrooesophageal reflux disease [Unknown]
  - Dyspepsia [Not Recovered/Not Resolved]
  - Rheumatoid factor increased [Unknown]
  - Pain in extremity [Unknown]
  - Arthralgia [Unknown]

NARRATIVE: CASE EVENT DATE: 20161101
